FAERS Safety Report 6240553-4 (Version None)
Quarter: 2009Q2

REPORT INFORMATION
  Report Type: 
  Country: None (occurrence: None)
  Receive Date: 20090623
  Receipt Date: 20080915
  Transmission Date: 20091009
  Serious: No
  Sender: FDA-Public Use
  Company Number: US-ASTRAZENECA-2008UW19160

PATIENT
  Age: 2 Year
  Sex: Male

DRUGS (2)
  1. PULMICORT RESPULES [Suspect]
     Indication: ASTHMA
     Dosage: 0.25 MG TWICE DAILY
     Route: 055
  2. ALBUTEROL [Concomitant]
     Dosage: NEBULIZER ONCE DAILY

REACTIONS (1)
  - PSYCHOMOTOR HYPERACTIVITY [None]
